FAERS Safety Report 14684623 (Version 4)
Quarter: 2018Q2

REPORT INFORMATION
  Report Type: Spontaneous
  Country: US (occurrence: US)
  Receive Date: 20180327
  Receipt Date: 20180413
  Transmission Date: 20180711
  Serious: No
  Sender: FDA-Public Use
  Company Number: US-TEVA-2018-US-866060

PATIENT
  Age: 75 Year
  Sex: Female

DRUGS (1)
  1. ESTRADIOL. [Suspect]
     Active Substance: ESTRADIOL
     Route: 067

REACTIONS (5)
  - Vaginal haemorrhage [Unknown]
  - Product packaging issue [Unknown]
  - Vulvovaginal pain [Unknown]
  - Product use complaint [Unknown]
  - Discomfort [Unknown]
